FAERS Safety Report 24729691 (Version 1)
Quarter: 2024Q4

REPORT INFORMATION
  Report Type: Spontaneous
  Country: CN (occurrence: CN)
  Receive Date: 20241213
  Receipt Date: 20241213
  Transmission Date: 20250115
  Serious: Yes (Other)
  Sender: ROCHE
  Company Number: CN-ROCHE-10000156072

PATIENT
  Age: 59 Year
  Sex: Male
  Weight: 70 kg

DRUGS (3)
  1. ATEZOLIZUMAB [Suspect]
     Active Substance: ATEZOLIZUMAB
     Indication: Small cell lung cancer
     Route: 042
     Dates: start: 20240904, end: 20240904
  2. DOCETAXEL [Concomitant]
     Active Substance: DOCETAXEL
     Indication: Small cell lung cancer
     Route: 042
     Dates: start: 20240904, end: 20240904
  3. LOBAPLATIN [Concomitant]
     Active Substance: LOBAPLATIN
     Route: 042
     Dates: start: 20240904, end: 20240904

REACTIONS (1)
  - Pancreatitis [Recovering/Resolving]

NARRATIVE: CASE EVENT DATE: 20241015
